FAERS Safety Report 19979880 (Version 1)
Quarter: 2021Q4

REPORT INFORMATION
  Report Type: Report from Study
  Country: US (occurrence: US)
  Receive Date: 20211021
  Receipt Date: 20211021
  Transmission Date: 20220304
  Serious: Yes (Other)
  Sender: FDA-Public Use
  Company Number: US-JAZZ-2021-US-019734

PATIENT
  Sex: Female

DRUGS (19)
  1. XYREM [Suspect]
     Active Substance: SODIUM OXYBATE
     Indication: Narcolepsy
     Dosage: 2.25 GRAM, BID
     Route: 048
     Dates: start: 201010, end: 201011
  2. XYREM [Suspect]
     Active Substance: SODIUM OXYBATE
     Indication: Cataplexy
     Dosage: DOSE ADJUSTMENT
     Route: 048
     Dates: start: 201011, end: 201109
  3. XYREM [Suspect]
     Active Substance: SODIUM OXYBATE
     Dosage: 4.5 GRAM, BID
     Route: 048
     Dates: start: 201109
  4. FLUOXETINE [Concomitant]
     Active Substance: FLUOXETINE HYDROCHLORIDE
  5. ZOLPIDEM [Concomitant]
     Active Substance: ZOLPIDEM TARTRATE
  6. AMPHETAMINE [Concomitant]
     Active Substance: AMPHETAMINE
  7. MIRTAZAPINE [Concomitant]
     Active Substance: MIRTAZAPINE
  8. ALLEGRA [Concomitant]
     Active Substance: FEXOFENADINE HYDROCHLORIDE
  9. LEVOTHYROXINE [Concomitant]
     Active Substance: LEVOTHYROXINE
  10. SINGULAIR [Concomitant]
     Active Substance: MONTELUKAST SODIUM
  11. PIROXICAM [Concomitant]
     Active Substance: PIROXICAM
  12. CALCIUM\VITAMIN D [Concomitant]
     Active Substance: CALCIUM\VITAMIN D
  13. LACTASE [Concomitant]
     Active Substance: LACTASE
  14. FLONASE [Concomitant]
     Active Substance: FLUTICASONE PROPIONATE
  15. OMEPRAZOLE [Concomitant]
     Active Substance: OMEPRAZOLE
  16. MIDODRINE [Concomitant]
     Active Substance: MIDODRINE
  17. ALOSETRON [Concomitant]
     Active Substance: ALOSETRON
  18. ZANTAC [Concomitant]
     Active Substance: RANITIDINE HYDROCHLORIDE
  19. ESTROGENS [Concomitant]
     Active Substance: ESTROGENS

REACTIONS (8)
  - Cerebrovascular accident [Unknown]
  - Craniocerebral injury [Unknown]
  - Osteoarthritis [Unknown]
  - Obsessive-compulsive disorder [Unknown]
  - Attention deficit hyperactivity disorder [Unknown]
  - Chronic sinusitis [Unknown]
  - Joint injury [Unknown]
  - Migraine [Unknown]
